FAERS Safety Report 10022145 (Version 3)
Quarter: 2014Q2

REPORT INFORMATION
  Report Type: Spontaneous
  Country: US (occurrence: US)
  Receive Date: 20140319
  Receipt Date: 20140520
  Transmission Date: 20141212
  Serious: Yes (Other)
  Sender: FDA-Public Use
  Company Number: US-VIIV HEALTHCARE LIMITED-A1065627A

PATIENT
  Age: 71 Year
  Sex: Female

DRUGS (1)
  1. EPZICOM [Suspect]
     Indication: HIV INFECTION
     Route: 065
     Dates: start: 20120526

REACTIONS (6)
  - Coronary arterial stent insertion [Unknown]
  - Hypertension [Unknown]
  - Blood cholesterol increased [Unknown]
  - Ill-defined disorder [Unknown]
  - Anxiety [Unknown]
  - Cardiac disorder [Unknown]
